FAERS Safety Report 5817824-6 (Version None)
Quarter: 2008Q3

REPORT INFORMATION
  Report Type: 
  Country: None (occurrence: None)
  Receive Date: 20080722
  Receipt Date: 20080715
  Transmission Date: 20090109
  Serious: Yes (Hospitalization, Other)
  Sender: FDA-Public Use
  Company Number: PHHO2007DE18238

PATIENT
  Sex: Female
  Weight: 91 kg

DRUGS (1)
  1. ZOLEDRONIC ACID [Suspect]
     Indication: BREAST CANCER
     Dosage: 4 MG EVERY 3 MONTHS
     Route: 042
     Dates: start: 20070827

REACTIONS (1)
  - OSTEONECROSIS [None]
